FAERS Safety Report 6133285-4 (Version None)
Quarter: 2009Q1

REPORT INFORMATION
  Report Type: 
  Country: None (occurrence: None)
  Receive Date: 20090325
  Receipt Date: 20090325
  Transmission Date: 20090719
  Serious: No
  Sender: FDA-Public Use
  Company Number: None

PATIENT
  Age: 73 Year
  Sex: Male

DRUGS (1)
  1. MIRTAZAPINE [Suspect]
     Dosage: 1 TABLET AT BEDTIME PO
     Route: 048
     Dates: start: 20090106, end: 20090108

REACTIONS (1)
  - LETHARGY [None]
